FAERS Safety Report 24059983 (Version 1)
Quarter: 2024Q3

REPORT INFORMATION
  Report Type: Spontaneous
  Country: US (occurrence: US)
  Receive Date: 20240708
  Receipt Date: 20240708
  Transmission Date: 20241016
  Serious: No
  Sender: PAREXEL
  Company Number: US-COHERUS BIOSCIENCES, Inc.- 2024-COH-US000212

PATIENT

DRUGS (4)
  1. YUSIMRY [Suspect]
     Active Substance: ADALIMUMAB-AQVH
     Indication: Crohn^s disease
     Dosage: 160 MG, Q2WEEKS
     Route: 058
     Dates: start: 20240315, end: 20240315
  2. YUSIMRY [Suspect]
     Active Substance: ADALIMUMAB-AQVH
     Indication: Rheumatoid arthritis
     Dosage: 40 MG, Q2WEEKS
     Route: 058
     Dates: start: 20240402, end: 20240402
  3. YUSIMRY [Suspect]
     Active Substance: ADALIMUMAB-AQVH
     Dosage: 40 MG, Q2WEEKS
     Route: 058
     Dates: start: 20240417, end: 20240417
  4. YUSIMRY [Suspect]
     Active Substance: ADALIMUMAB-AQVH
     Dosage: 40 MG, Q2WEEKS
     Route: 058
     Dates: start: 20240430

REACTIONS (2)
  - Product dose omission issue [Recovered/Resolved]
  - Product quality issue [Unknown]

NARRATIVE: CASE EVENT DATE: 20240315
